FAERS Safety Report 7098085-X (Version None)
Quarter: 2010Q4

REPORT INFORMATION
  Report Type: 
  Country: None (occurrence: None)
  Receive Date: 20101104
  Receipt Date: 20101020
  Transmission Date: 20110411
  Serious: Yes (Hospitalization, Other)
  Sender: FDA-Public Use
  Company Number: 1000017062

PATIENT
  Age: 25 Year
  Sex: Female
  Weight: 110 kg

DRUGS (2)
  1. ESCITALOPRAM [Suspect]
     Indication: DEPRESSION
     Dates: start: 20081101, end: 20081101
  2. GESTINYL (GESTINYL) (TABLETS) (GESTINYL) [Concomitant]

REACTIONS (9)
  - CHEST DISCOMFORT [None]
  - DEATH OF RELATIVE [None]
  - DIZZINESS [None]
  - FATIGUE [None]
  - JOB DISSATISFACTION [None]
  - MOTION SICKNESS [None]
  - NAUSEA [None]
  - SUICIDAL IDEATION [None]
  - VITAMIN D DEFICIENCY [None]
